FAERS Safety Report 6745133-X (Version None)
Quarter: 2010Q2

REPORT INFORMATION
  Report Type: 
  Country: None (occurrence: None)
  Receive Date: 20100526
  Receipt Date: 20100520
  Transmission Date: 20101027
  Serious: Yes (Death, Hospitalization, Other)
  Sender: FDA-Public Use
  Company Number: 2010US001480

PATIENT
  Age: 68 Year
  Sex: Male

DRUGS (10)
  1. PROGRAF [Suspect]
     Indication: LIVER TRANSPLANT
     Dosage: 0.5 MG, UID/QD, ORAL
     Route: 048
     Dates: start: 20051210, end: 20091023
  2. LOPRESSOR [Concomitant]
  3. INSULIN (INSULIN) [Concomitant]
  4. KEPPRA [Concomitant]
  5. NEURONTIN [Concomitant]
  6. LACTULOSE [Concomitant]
  7. SEROQUEL [Concomitant]
  8. PEPCID [Concomitant]
  9. CELLCEPT [Concomitant]
  10. NORVASC [Concomitant]

REACTIONS (39)
  - ABDOMINAL DISTENSION [None]
  - ABDOMINAL WALL DISORDER [None]
  - ABSCESS [None]
  - AGGRESSION [None]
  - ARTHRALGIA [None]
  - BLOOD CREATININE INCREASED [None]
  - BLOOD CULTURE POSITIVE [None]
  - CELLULITIS [None]
  - CHILLS [None]
  - CONSTIPATION [None]
  - COUGH [None]
  - DECREASED APPETITE [None]
  - DEHYDRATION [None]
  - DIARRHOEA [None]
  - DISEASE COMPLICATION [None]
  - DRUG INEFFECTIVE [None]
  - ENTEROCOCCAL INFECTION [None]
  - ESCHERICHIA INFECTION [None]
  - EXTRADURAL ABSCESS [None]
  - HALLUCINATION [None]
  - HALLUCINATION, VISUAL [None]
  - HEPATIC NEOPLASM MALIGNANT RECURRENT [None]
  - HYPOGLYCAEMIA [None]
  - HYPOTENSION [None]
  - IMMUNOSUPPRESSANT DRUG LEVEL DECREASED [None]
  - INCISIONAL HERNIA [None]
  - INSOMNIA [None]
  - MALAISE [None]
  - MENTAL STATUS CHANGES [None]
  - METASTASES TO BONE [None]
  - METASTASES TO LUNG [None]
  - METASTATIC NEOPLASM [None]
  - MUSCULOSKELETAL CHEST PAIN [None]
  - OSTEOMYELITIS [None]
  - PAIN IN EXTREMITY [None]
  - PULMONARY GRANULOMA [None]
  - RALES [None]
  - SEPSIS [None]
  - VOMITING [None]
